FAERS Safety Report 6921694-2 (Version None)
Quarter: 2010Q3

REPORT INFORMATION
  Report Type: 
  Country: None (occurrence: None)
  Receive Date: 20100812
  Receipt Date: 20100804
  Transmission Date: 20110219
  Serious: Yes (Hospitalization)
  Sender: FDA-Public Use
  Company Number: US-PERRIGO-10US011890

PATIENT
  Sex: Male
  Weight: 86.168 kg

DRUGS (4)
  1. MAGNESIUM HYDROXIDE 80 MG/ML CHERRY 949 [Suspect]
     Indication: CONSTIPATION
     Dosage: 30 ML DAILY, PRN
     Route: 048
     Dates: start: 20100720
  2. NORVASC [Concomitant]
     Indication: HYPERTENSION
     Dosage: 20 MG, QD
     Dates: start: 20050801
  3. PLAVIX [Concomitant]
     Indication: STENT PLACEMENT
     Dosage: 75 MG, QD
     Dates: start: 20090801
  4. ZOCOR [Concomitant]
     Indication: BLOOD CHOLESTEROL INCREASED
     Dosage: 40 MG, QD
     Dates: start: 20050801

REACTIONS (3)
  - FAECES DISCOLOURED [None]
  - GASTROINTESTINAL HAEMORRHAGE [None]
  - INCORRECT DRUG ADMINISTRATION DURATION [None]
